FAERS Safety Report 9433756 (Version 2)
Quarter: 2013Q4

REPORT INFORMATION
  Report Type: Spontaneous
  Country: GB (occurrence: None)
  Receive Date: 20130729
  Receipt Date: 20131114
  Transmission Date: 20140711
  Serious: Yes (Life-Threatening, Hospitalization)
  Sender: FDA-Public Use
  Company Number: 1809721

PATIENT
  Age: 15 Year
  Sex: Male
  Weight: 42 kg

DRUGS (14)
  1. (METHOTREXATE) [Suspect]
     Indication: ANAPLASTIC LARGE-CELL LYMPHOMA
     Dosage: INTRAVENOUS (NOT OTHERWISE SPECIFIED)?
     Route: 042
     Dates: start: 20130619, end: 20130619
  2. LANSOPRAZOLE [Suspect]
     Indication: DYSPEPSIA
     Route: 048
     Dates: start: 20130525, end: 20130621
  3. (LEVOMEPROMAZINE) [Concomitant]
  4. (PARACETAMOL) [Concomitant]
  5. (PIPERACILLIN/TAZOBACTAM) [Concomitant]
  6. (GENTAMICIN) [Concomitant]
  7. (CODEINE) [Concomitant]
  8. (MESNA) [Concomitant]
  9. (IFOSEMIDE) [Concomitant]
  10. (CYTARBABINE) [Concomitant]
  11. (DEXAMETHASONE) [Concomitant]
  12. (CALCIUM FOLINATE) [Concomitant]
  13. (ETOPOSIDE) [Concomitant]
  14. (ONDANSETRON) [Concomitant]

REACTIONS (7)
  - Tubulointerstitial nephritis [None]
  - White blood cell count increased [None]
  - Abdominal pain [None]
  - Renal failure acute [None]
  - Pancreatitis [None]
  - Amylase increased [None]
  - Tubulointerstitial nephritis [None]
